FAERS Safety Report 16918526 (Version 1)
Quarter: 2019Q4

REPORT INFORMATION
  Report Type: Spontaneous
  Country: CN (occurrence: CN)
  Receive Date: 20191015
  Receipt Date: 20191015
  Transmission Date: 20200122
  Serious: Yes (Other)
  Sender: FDA-Public Use
  Company Number: CN-PFIZER INC-2019439342

PATIENT
  Age: 15 Month
  Sex: Female
  Weight: 6 kg

DRUGS (2)
  1. GLUCOSE [Concomitant]
     Active Substance: DEXTROSE
     Dosage: UNK(5% GLUCOSE INJECTION 100 ML + METHYLPREDNISOLONE SODIUM SUCCINATE)
     Route: 041
     Dates: start: 20190905, end: 20190909
  2. METHYLPREDNISOLONE SODIUM SUCCINATE. [Suspect]
     Active Substance: METHYLPREDNISOLONE SODIUM SUCCINATE
     Indication: ANTIINFLAMMATORY THERAPY
     Dosage: 12 MG, 1X/DAY
     Route: 041
     Dates: start: 20190905, end: 20190909

REACTIONS (2)
  - Crying [Recovered/Resolved]
  - Dysphoria [Recovered/Resolved]

NARRATIVE: CASE EVENT DATE: 20190910
